FAERS Safety Report 10613181 (Version 2)
Quarter: 2014Q4

REPORT INFORMATION
  Report Type: Spontaneous
  Country: IT (occurrence: IT)
  Receive Date: 20141128
  Receipt Date: 20141202
  Transmission Date: 20150529
  Serious: Yes (Death, Other)
  Sender: FDA-Public Use
  Company Number: IT-MERCK-1411ITA012730

PATIENT

DRUGS (2)
  1. TEMOZOLOMIDE. [Suspect]
     Active Substance: TEMOZOLOMIDE
     Dosage: 200 MG/M2 FOR FIVE CONSECUTIVE DAYS, EVERY 28 DAYS
     Route: 048
  2. TEMOZOLOMIDE. [Suspect]
     Active Substance: TEMOZOLOMIDE
     Indication: GLIOBLASTOMA
     Dosage: 75.00 MG/M2, QD CONTINUOUSLY ADMINISTERED  DURING RADIOTHERAPY
     Route: 048

REACTIONS (1)
  - Bone marrow failure [Fatal]
